FAERS Safety Report 14474076 (Version 2)
Quarter: 2018Q2

REPORT INFORMATION
  Report Type: Spontaneous
  Country: US (occurrence: US)
  Receive Date: 20180201
  Receipt Date: 20180402
  Transmission Date: 20180711
  Serious: Yes (Hospitalization, Other)
  Sender: FDA-Public Use
  Company Number: US-JNJFOC-20180100316

PATIENT
  Age: 54 Year
  Sex: Female

DRUGS (2)
  1. INVOKANA [Suspect]
     Active Substance: CANAGLIFLOZIN
     Indication: DIABETES MELLITUS
     Route: 048
  2. INVOKANA [Suspect]
     Active Substance: CANAGLIFLOZIN
     Indication: DIABETES MELLITUS
     Route: 048
     Dates: start: 20140918, end: 20150121

REACTIONS (7)
  - Cellulitis [Recovering/Resolving]
  - Diabetic foot infection [Recovering/Resolving]
  - Abscess limb [Recovering/Resolving]
  - Acute kidney injury [Recovering/Resolving]
  - Osteomyelitis acute [Unknown]
  - Toe amputation [Recovering/Resolving]
  - Osteomyelitis [Recovering/Resolving]

NARRATIVE: CASE EVENT DATE: 201402
